FAERS Safety Report 7198266-0 (Version None)
Quarter: 2010Q4

REPORT INFORMATION
  Report Type: 
  Country: None (occurrence: None)
  Receive Date: 20101223
  Receipt Date: 20101223
  Transmission Date: 20110411
  Serious: Yes (Other)
  Sender: FDA-Public Use
  Company Number: None

PATIENT
  Age: 29 Year
  Sex: Male
  Weight: 63.5036 kg

DRUGS (1)
  1. OXYCONTIN [Suspect]
     Indication: INTERVERTEBRAL DISC PROTRUSION
     Dosage: 20 MG EVERY 12 HOURS PO
     Route: 048
     Dates: start: 20101220, end: 20101222

REACTIONS (3)
  - DISCOMFORT [None]
  - FLATULENCE [None]
  - GASTRIC DISORDER [None]
